FAERS Safety Report 8470188-4 (Version None)
Quarter: 2012Q2

REPORT INFORMATION
  Report Type: 
  Country: None (occurrence: None)
  Receive Date: 20120621
  Receipt Date: 20120621
  Transmission Date: 20120825
  Serious: No
  Sender: FDA-Public Use
  Company Number: None

PATIENT
  Age: 3 Year
  Sex: Female
  Weight: 14.5151 kg

DRUGS (1)
  1. KEPPRA [Suspect]
     Indication: EPILEPSY
     Dates: start: 20120123, end: 20120530

REACTIONS (5)
  - AGGRESSION [None]
  - IRRITABILITY [None]
  - SLEEP DISORDER [None]
  - EATING DISORDER [None]
  - MOOD ALTERED [None]
